FAERS Safety Report 14408322 (Version 3)
Quarter: 2019Q1

REPORT INFORMATION
  Report Type: Spontaneous
  Country: US (occurrence: US)
  Receive Date: 20180118
  Receipt Date: 20190329
  Transmission Date: 20190417
  Serious: Yes (Other)
  Sender: FDA-Public Use
  Company Number: US-NEUROCRINE BIOSCIENCES INC.-2017NBI02056

PATIENT
  Age: 37 Year
  Sex: Female
  Weight: 56.3 kg

DRUGS (6)
  1. INGREZZA [Suspect]
     Active Substance: VALBENAZINE
     Indication: TARDIVE DYSKINESIA
  2. DIAZEPAM. [Concomitant]
     Active Substance: DIAZEPAM
  3. COGENTIN [Concomitant]
     Active Substance: BENZTROPINE MESYLATE
  4. BACLOFEN. [Concomitant]
     Active Substance: BACLOFEN
  5. PAMELOR [Concomitant]
     Active Substance: NORTRIPTYLINE HYDROCHLORIDE
     Indication: NEURALGIA
  6. INGREZZA [Suspect]
     Active Substance: VALBENAZINE
     Indication: DYSTONIA
     Route: 048
     Dates: start: 20171207, end: 20171221

REACTIONS (9)
  - Dry mouth [Recovered/Resolved]
  - Ocular hyperaemia [Recovered/Resolved]
  - Somnolence [Recovered/Resolved]
  - Constipation [Recovered/Resolved]
  - Disturbance in attention [Recovered/Resolved]
  - Movement disorder [Recovered/Resolved]
  - Dermatitis [Not Recovered/Not Resolved]
  - Urticarial vasculitis [Not Recovered/Not Resolved]
  - Balance disorder [Recovered/Resolved]

NARRATIVE: CASE EVENT DATE: 201712
